FAERS Safety Report 7684945-5 (Version None)
Quarter: 2011Q3

REPORT INFORMATION
  Report Type: 
  Country: None (occurrence: None)
  Receive Date: 20110816
  Receipt Date: 20110804
  Transmission Date: 20111222
  Serious: Yes (Hospitalization)
  Sender: FDA-Public Use
  Company Number: PHFR2011GB03950

PATIENT
  Sex: Male

DRUGS (12)
  1. RAMIPRIL [Concomitant]
     Indication: MYOCARDIAL ISCHAEMIA
     Dosage: 2.5 MG, UNK
     Route: 048
  2. SIMVASTATIN [Concomitant]
     Indication: MYOCARDIAL ISCHAEMIA
     Dosage: 20 MG, UNK
     Route: 048
  3. CLOPIDOGREL [Concomitant]
     Indication: ARRHYTHMIA
  4. BISOPROLOL FUMARATE [Concomitant]
     Indication: ARRHYTHMIA
  5. ASPIRIN [Concomitant]
     Indication: MYOCARDIAL ISCHAEMIA
     Dosage: 75 MG, UNK
     Route: 048
  6. CLOZAPINE [Suspect]
     Indication: SCHIZOPHRENIA
     Route: 048
     Dates: start: 20110415
  7. RAMIPRIL [Concomitant]
     Indication: ARRHYTHMIA
  8. BISOPROLOL FUMARATE [Concomitant]
     Indication: MYOCARDIAL ISCHAEMIA
     Dosage: 5 MG, UNK
     Route: 048
  9. SIMVASTATIN [Concomitant]
     Indication: ARRHYTHMIA
  10. CLOZAPINE [Suspect]
     Dosage: 125 MG, UNK
     Route: 048
  11. ASPIRIN [Concomitant]
     Indication: ARRHYTHMIA
  12. CLOPIDOGREL [Concomitant]
     Indication: MYOCARDIAL ISCHAEMIA
     Dosage: 75 MG, UNK
     Route: 048

REACTIONS (1)
  - CIRCULATORY COLLAPSE [None]
